FAERS Safety Report 5589208-X (Version None)
Quarter: 2008Q1

REPORT INFORMATION
  Report Type: 
  Country: None (occurrence: None)
  Receive Date: 20080109
  Receipt Date: 20080109
  Transmission Date: 20080703
  Serious: Yes (Hospitalization)
  Sender: FDA-Public Use
  Company Number: None

PATIENT
  Sex: Male
  Weight: 61 kg

DRUGS (12)
  1. SUNITINIB [Suspect]
     Indication: RENAL CANCER METASTATIC
     Dosage: 50 MG DAILY ORAL
     Route: 048
     Dates: start: 20071107, end: 20071223
  2. SYNTHROID [Concomitant]
  3. PEPCID [Concomitant]
  4. SENNA PLUS [Concomitant]
  5. PREPARATION H OINTMENT [Concomitant]
  6. BIAFINE EMULSION [Concomitant]
  7. NYSTATIN [Concomitant]
  8. LIDOCAINE [Concomitant]
  9. COMPAZINE [Concomitant]
  10. ZOFRAN [Concomitant]
  11. FLUVOXAMINE MALEATE [Concomitant]
  12. SUMATRIPTAN SUCCINATE [Concomitant]

REACTIONS (1)
  - SMALL INTESTINAL OBSTRUCTION [None]
